FAERS Safety Report 10301625 (Version 6)
Quarter: 2014Q3

REPORT INFORMATION
  Report Type: Report from Study
  Country: KR (occurrence: KR)
  Receive Date: 20140714
  Receipt Date: 20140905
  Transmission Date: 20150326
  Serious: Yes (Death, Hospitalization, Other)
  Sender: FDA-Public Use
  Company Number: KR-CELGENEUS-286-22393-13122845

PATIENT
  Age: 64 Year
  Sex: Male
  Weight: 43 kg

DRUGS (1)
  1. ISTODAX [Suspect]
     Active Substance: ROMIDEPSIN
     Indication: ANGIOCENTRIC LYMPHOMA
     Route: 041
     Dates: start: 20131118, end: 20131202

REACTIONS (2)
  - Septic shock [Fatal]
  - Convulsion [Recovered/Resolved]

NARRATIVE: CASE EVENT DATE: 20131213
